FAERS Safety Report 25776124 (Version 1)
Quarter: 2025Q3

REPORT INFORMATION
  Report Type: Spontaneous
  Country: US (occurrence: US)
  Receive Date: 20250909
  Receipt Date: 20250909
  Transmission Date: 20251020
  Serious: No
  Sender: DOMPE FARMACEUTICI
  Company Number: US-FARMAPROD-202408-2932

PATIENT
  Sex: Male

DRUGS (11)
  1. OXERVATE [Suspect]
     Active Substance: CENEGERMIN-BKBJ
     Indication: Product used for unknown indication
     Route: 047
     Dates: start: 20240803
  2. OXERVATE [Suspect]
     Active Substance: CENEGERMIN-BKBJ
  3. LISINOPRIL [Concomitant]
     Active Substance: LISINOPRIL
  4. VITAMIN B12 [Concomitant]
     Active Substance: CYANOCOBALAMIN
  5. VITAMIN D-400 [Concomitant]
  6. METOPROLOL SUCCINATE [Concomitant]
     Active Substance: METOPROLOL SUCCINATE
  7. ATORVASTATIN CALCIUM [Concomitant]
     Active Substance: ATORVASTATIN CALCIUM
  8. ASPIRIN [Concomitant]
     Active Substance: ASPIRIN
  9. OFLOXACIN [Concomitant]
     Active Substance: OFLOXACIN
  10. ATROPINE SULFATE [Concomitant]
     Active Substance: ATROPINE SULFATE
  11. PREDNISOLONE-BROMFENAC [Concomitant]

REACTIONS (3)
  - Lacrimation increased [Not Recovered/Not Resolved]
  - Photophobia [Unknown]
  - Off label use [Unknown]
